FAERS Safety Report 4554594-6 (Version None)
Quarter: 2005Q1

REPORT INFORMATION
  Report Type: 
  Country: None (occurrence: None)
  Receive Date: 20050114
  Receipt Date: 20040331
  Transmission Date: 20050727
  Serious: Yes (Other)
  Sender: FDA-Public Use
  Company Number: GXKR2004US00626

PATIENT
  Age: 37 Year
  Sex: Female

DRUGS (1)
  1. IBUPROFEN [Suspect]

REACTIONS (4)
  - COLITIS COLLAGENOUS [None]
  - ILEAL ULCER [None]
  - LARGE INTESTINAL ULCER [None]
  - MUCOSAL ULCERATION [None]
